FAERS Safety Report 9787039 (Version 2)
Quarter: 2014Q1

REPORT INFORMATION
  Report Type: Spontaneous
  Country: DE (occurrence: DE)
  Receive Date: 20131227
  Receipt Date: 20140113
  Transmission Date: 20141002
  Serious: Yes (Other)
  Sender: FDA-Public Use
  Company Number: DE-GILEAD-2013-0090506

PATIENT
  Age: 36 Year
  Sex: Female
  Weight: 48 kg

DRUGS (9)
  1. CAYSTON [Suspect]
     Indication: PSEUDOMONAS INFECTION
     Dosage: UNK
     Route: 055
     Dates: start: 201211
  2. COLISTIN [Concomitant]
     Dosage: 1000000 IU, BID
     Route: 055
  3. VITAMIN A                          /00056001/ [Concomitant]
  4. VITAMIN D                          /00107901/ [Concomitant]
  5. VITAMIN E                          /00110501/ [Concomitant]
  6. VITAMIN K                          /00032401/ [Concomitant]
  7. UDC [Concomitant]
  8. PULMOZYME [Concomitant]
  9. MANNITOL [Concomitant]

REACTIONS (3)
  - Pseudomonas test positive [Unknown]
  - No therapeutic response [Unknown]
  - Off label use [Unknown]
